FAERS Safety Report 25422310 (Version 1)
Quarter: 2025Q2

REPORT INFORMATION
  Report Type: Report from Study
  Country: AE (occurrence: AE)
  Receive Date: 20250611
  Receipt Date: 20250611
  Transmission Date: 20250717
  Serious: Yes (Disabling)
  Sender: ROCHE
  Company Number: AE-ROCHE-10000304178

PATIENT
  Sex: Female

DRUGS (1)
  1. OCREVUS [Suspect]
     Active Substance: OCRELIZUMAB
     Indication: Product used for unknown indication
     Route: 042

REACTIONS (3)
  - Nervous system disorder [Unknown]
  - Speech disorder [Unknown]
  - Dysphagia [Unknown]
